FAERS Safety Report 19461086 (Version 2)
Quarter: 2021Q3

REPORT INFORMATION
  Report Type: Spontaneous
  Country: US (occurrence: US)
  Receive Date: 20210625
  Receipt Date: 20210702
  Transmission Date: 20211014
  Serious: No
  Sender: FDA-Public Use
  Company Number: US-GLAXOSMITHKLINE-US2021131442

PATIENT
  Age: 63 Year
  Sex: Female
  Weight: 66.68 kg

DRUGS (3)
  1. NUCALA [Suspect]
     Active Substance: MEPOLIZUMAB
     Indication: ASTHMA PROPHYLAXIS
     Dosage: UNK, Z, ONCE A MONTH
  2. NUCALA [Suspect]
     Active Substance: MEPOLIZUMAB
     Indication: ASTHMA PROPHYLAXIS
     Dosage: 100 MG, CYC (Q4WK? EVERY 4 WEEKS).
     Route: 058
     Dates: start: 20210322, end: 20210526
  3. PREDNISONE. [Concomitant]
     Active Substance: PREDNISONE
     Indication: ASTHMA
     Dosage: UNK

REACTIONS (3)
  - Myalgia [Unknown]
  - Arthralgia [Unknown]
  - Condition aggravated [Not Recovered/Not Resolved]

NARRATIVE: CASE EVENT DATE: 20210322
